FAERS Safety Report 21711891 (Version 1)
Quarter: 2022Q4

REPORT INFORMATION
  Report Type: Other
  Country: CA (occurrence: None)
  Receive Date: 20221212
  Receipt Date: 20221212
  Transmission Date: 20230113
  Serious: Yes (Other)
  Sender: FDA-Public Use
  Company Number: CA-ROCHE-3232867

PATIENT
  Sex: Female

DRUGS (3)
  1. ALECTINIB [Suspect]
     Active Substance: ALECTINIB
     Indication: Non-small cell lung cancer
     Route: 065
  2. ALECTINIB [Suspect]
     Active Substance: ALECTINIB
     Route: 065
  3. ALECTINIB [Suspect]
     Active Substance: ALECTINIB
     Route: 065

REACTIONS (6)
  - Hyperbilirubinaemia [Recovered/Resolved]
  - Constipation [Unknown]
  - Blood creatine phosphokinase MM increased [Recovered/Resolved]
  - Hepatic enzyme increased [Unknown]
  - Myalgia [Recovered/Resolved]
  - Glomerular filtration rate decreased [Recovering/Resolving]
